FAERS Safety Report 9320802 (Version 1)
Quarter: 2013Q2

REPORT INFORMATION
  Report Type: Spontaneous
  Country: KR (occurrence: KR)
  Receive Date: 20130531
  Receipt Date: 20130531
  Transmission Date: 20140414
  Serious: Yes (Other)
  Sender: FDA-Public Use
  Company Number: KR-GE HEALTHCARE MEDICAL DIAGNOSTICS-VISP-NO-1305S-0639

PATIENT
  Age: 57 Year
  Sex: Male

DRUGS (6)
  1. VISIPAQUE [Suspect]
     Indication: BACK PAIN
     Route: 013
     Dates: start: 20130510, end: 20130510
  2. VISIPAQUE [Suspect]
     Indication: CHEST PAIN
  3. VISIPAQUE [Suspect]
     Indication: DIAGNOSTIC PROCEDURE
  4. IOPROMIDE [Concomitant]
     Indication: BACK PAIN
     Route: 042
     Dates: start: 20130512, end: 20130512
  5. IOPROMIDE [Concomitant]
     Indication: CHEST PAIN
     Route: 042
     Dates: start: 20130512, end: 20130512
  6. IOPROMIDE [Concomitant]
     Indication: DIAGNOSTIC PROCEDURE

REACTIONS (2)
  - Brain oedema [Unknown]
  - Renal impairment [Unknown]
